FAERS Safety Report 5575778-4 (Version None)
Quarter: 2007Q4

REPORT INFORMATION
  Report Type: 
  Country: None (occurrence: None)
  Receive Date: 20071221
  Receipt Date: 20071212
  Transmission Date: 20080405
  Serious: Yes (Other)
  Sender: FDA-Public Use
  Company Number: S07-GER-06173-01

PATIENT
  Age: 19 Year
  Sex: Female
  Weight: 74 kg

DRUGS (3)
  1. ESCITALOPRAM [Suspect]
     Indication: DEPRESSION
     Dosage: 15 MG QD PO
     Route: 048
     Dates: start: 20060801, end: 20071101
  2. ESCITALOPRAM [Suspect]
     Indication: DEPRESSION
     Dosage: 10 MG QD PO
     Route: 048
     Dates: start: 20071102, end: 20071101
  3. ESCITALOPRAM [Suspect]
     Indication: DEPRESSION
     Dosage: 5 MG QD PO
     Route: 048
     Dates: start: 20071101, end: 20071101

REACTIONS (16)
  - BLOOD CHOLESTEROL INCREASED [None]
  - BLOOD PRESSURE FLUCTUATION [None]
  - BLOOD PRESSURE INCREASED [None]
  - DRUG WITHDRAWAL SYNDROME [None]
  - EYE SWELLING [None]
  - GAIT DISTURBANCE [None]
  - HEART RATE INCREASED [None]
  - IRRITABILITY [None]
  - MICTURITION FREQUENCY DECREASED [None]
  - MOVEMENT DISORDER [None]
  - MUSCLE TWITCHING [None]
  - REFUSAL OF TREATMENT BY PATIENT [None]
  - RESTLESSNESS [None]
  - THIRST [None]
  - VERTIGO [None]
  - WEIGHT INCREASED [None]
